FAERS Safety Report 25728538 (Version 1)
Quarter: 2025Q3

REPORT INFORMATION
  Report Type: Spontaneous
  Country: IR (occurrence: IR)
  Receive Date: 20250826
  Receipt Date: 20250826
  Transmission Date: 20251021
  Serious: Yes (Life-Threatening, Other)
  Sender: PFIZER
  Company Number: IR-PFIZER INC-PV202500102119

PATIENT
  Age: 39 Year
  Sex: Male

DRUGS (13)
  1. MEROPENEM [Suspect]
     Active Substance: MEROPENEM
     Indication: Cellulitis orbital
     Dosage: 500 MG, 3X/DAY
     Route: 042
  2. MEROPENEM [Suspect]
     Active Substance: MEROPENEM
     Indication: Optic neuropathy
  3. HYDROCORTISONE SODIUM SUCCINATE [Suspect]
     Active Substance: HYDROCORTISONE SODIUM SUCCINATE
     Indication: Cellulitis orbital
     Dosage: 200 MG, DAILY
     Route: 042
  4. HYDROCORTISONE SODIUM SUCCINATE [Suspect]
     Active Substance: HYDROCORTISONE SODIUM SUCCINATE
     Indication: Optic neuropathy
  5. CEPHALEXIN [Suspect]
     Active Substance: CEPHALEXIN
     Indication: Cellulitis orbital
     Dosage: 500 MG, 4X/DAY
  6. CEPHALEXIN [Suspect]
     Active Substance: CEPHALEXIN
     Indication: Optic neuropathy
  7. KETOROLAC [Suspect]
     Active Substance: KETOROLAC TROMETHAMINE
     Indication: Analgesic therapy
     Route: 042
  8. KETOROLAC [Suspect]
     Active Substance: KETOROLAC TROMETHAMINE
     Indication: Cellulitis orbital
  9. KETOROLAC [Suspect]
     Active Substance: KETOROLAC TROMETHAMINE
     Indication: Optic neuropathy
  10. VANCOMYCIN [Suspect]
     Active Substance: VANCOMYCIN
     Indication: Cellulitis orbital
     Dosage: 1 G, 2X/DAY
     Route: 042
  11. VANCOMYCIN [Suspect]
     Active Substance: VANCOMYCIN
     Indication: Optic neuropathy
  12. CEFTAZIDIME [Suspect]
     Active Substance: CEFTAZIDIME
     Indication: Cellulitis orbital
     Dosage: 1 G, 3X/DAY
     Route: 042
  13. CEFTAZIDIME [Suspect]
     Active Substance: CEFTAZIDIME
     Indication: Optic neuropathy

REACTIONS (1)
  - Drug ineffective [Unknown]
